FAERS Safety Report 24857914 (Version 1)
Quarter: 2025Q1

REPORT INFORMATION
  Report Type: Spontaneous
  Country: US (occurrence: US)
  Receive Date: 20250117
  Receipt Date: 20250117
  Transmission Date: 20250409
  Serious: Yes (Other)
  Sender: ALEXION PHARMACEUTICALS
  Company Number: US-AstraZeneca-CH-00786971A

PATIENT

DRUGS (4)
  1. BRILINTA [Suspect]
     Active Substance: TICAGRELOR
     Route: 065
  2. BRILINTA [Suspect]
     Active Substance: TICAGRELOR
     Route: 065
  3. BRILINTA [Suspect]
     Active Substance: TICAGRELOR
     Route: 065
  4. BRILINTA [Suspect]
     Active Substance: TICAGRELOR
     Route: 065

REACTIONS (5)
  - Gastritis [Unknown]
  - Flatulence [Unknown]
  - Hepatic enzyme increased [Unknown]
  - Visual impairment [Unknown]
  - Gastrooesophageal reflux disease [Unknown]
